FAERS Safety Report 8319609-8 (Version None)
Quarter: 2012Q2

REPORT INFORMATION
  Report Type: 
  Country: None (occurrence: None)
  Receive Date: 20120427
  Receipt Date: 20120420
  Transmission Date: 20120825
  Serious: Yes (Other)
  Sender: FDA-Public Use
  Company Number: PHEH2012US008536

PATIENT
  Sex: Male

DRUGS (5)
  1. SINGULAIR [Concomitant]
     Dosage: UNK UKN, UNK
  2. AFINITOR [Suspect]
     Indication: CONVULSION
     Dosage: 2.5 MG, QD
     Route: 048
     Dates: start: 20110929
  3. DEPAKOTE [Concomitant]
  4. ALLEGRA [Concomitant]
     Dosage: UNK UKN, UNK
  5. KEPPRA [Concomitant]
     Dosage: UNK UKN, UNK

REACTIONS (2)
  - CONVULSION [None]
  - UPPER LIMB FRACTURE [None]
